FAERS Safety Report 9219175 (Version 1)
Quarter: 2013Q2

REPORT INFORMATION
  Report Type: Spontaneous
  Country: US (occurrence: None)
  Receive Date: 20130404
  Receipt Date: 20130404
  Transmission Date: 20140414
  Serious: Yes (Hospitalization)
  Sender: FDA-Public Use
  Company Number: TPA2013A02505

PATIENT
  Sex: Female

DRUGS (2)
  1. EDARBI [Suspect]
     Indication: HYPERTENSION
  2. MOBIC [Suspect]

REACTIONS (1)
  - Hyperkalaemia [None]
